FAERS Safety Report 4796504-2 (Version None)
Quarter: 2005Q4

REPORT INFORMATION
  Report Type: 
  Country: None (occurrence: None)
  Receive Date: 20051006
  Receipt Date: 20051006
  Transmission Date: 20060501
  Serious: Yes (Life-Threatening, Hospitalization)
  Sender: FDA-Public Use
  Company Number: None

PATIENT
  Age: 52 Year
  Sex: Female

DRUGS (15)
  1. CHLORAMPHENICOL [Suspect]
     Indication: ENTEROCOCCAL INFECTION
     Dosage: 900 MG IV Q 8 HOURS
     Route: 042
     Dates: start: 20041212, end: 20041221
  2. FLUCONAZOLE [Concomitant]
  3. GENT [Concomitant]
  4. AZTREONAM [Concomitant]
  5. ENALAPRIL [Concomitant]
  6. FLUDROCORTISONE [Concomitant]
  7. GLUTAMINE [Concomitant]
  8. HYDROCORTISONE [Concomitant]
  9. LEVOTHYROXINE [Concomitant]
  10. METOPROLOL SUCCINATE [Concomitant]
  11. RANITIDINE [Concomitant]
  12. RISPERIDONE [Concomitant]
  13. VALPROIC ACID [Concomitant]
  14. HYDROMORPHONE [Concomitant]
  15. HEPARIN [Concomitant]

REACTIONS (1)
  - PLATELET COUNT DECREASED [None]
